FAERS Safety Report 24089234 (Version 1)
Quarter: 2024Q3

REPORT INFORMATION
  Report Type: Spontaneous
  Country: US (occurrence: US)
  Receive Date: 20240715
  Receipt Date: 20240715
  Transmission Date: 20241017
  Serious: No
  Sender: PERRIGO
  Company Number: US-PERRIGO-23US007532

PATIENT
  Age: 49 Year
  Sex: Female
  Weight: 61.224 kg

DRUGS (2)
  1. MINOXIDIL [Suspect]
     Active Substance: MINOXIDIL
     Indication: Alopecia
     Dosage: UNKNOWN, TWICE
     Route: 061
     Dates: start: 20230628, end: 20230628
  2. MINOXIDIL [Suspect]
     Active Substance: MINOXIDIL
     Dosage: UNKNOWN, ONCE IN THE MORNING
     Route: 061
     Dates: start: 20230629, end: 20230629

REACTIONS (4)
  - Application site paraesthesia [Not Recovered/Not Resolved]
  - Off label use [Unknown]
  - Expired product administered [Unknown]
  - Wrong technique in product usage process [Unknown]

NARRATIVE: CASE EVENT DATE: 20230628
